FAERS Safety Report 9269794 (Version 1)
Quarter: 2013Q2

REPORT INFORMATION
  Report Type: Spontaneous
  Country: US (occurrence: US)
  Receive Date: 20130503
  Receipt Date: 20130503
  Transmission Date: 20140414
  Serious: No
  Sender: FDA-Public Use
  Company Number: US-BAYER-2013-055030

PATIENT
  Age: 70 Year
  Sex: Female
  Weight: 73 kg

DRUGS (3)
  1. ALEVE CAPLET [Suspect]
     Dosage: 1 DF, PRN
     Route: 048
  2. ALKA SELTZER [Suspect]
     Dosage: 2 DF, PRN
     Route: 048
  3. ASPIRIN [Concomitant]

REACTIONS (1)
  - Hepatic function abnormal [None]
